FAERS Safety Report 6031160-7 (Version None)
Quarter: 2009Q1

REPORT INFORMATION
  Report Type: 
  Country: None (occurrence: None)
  Receive Date: 20090108
  Receipt Date: 20081230
  Transmission Date: 20090719
  Serious: Yes (Hospitalization)
  Sender: FDA-Public Use
  Company Number: NZ-BAXTER-2008BH014041

PATIENT
  Age: 39 Year
  Sex: Female

DRUGS (6)
  1. SODIUM CHLORIDE 0.9% IN PLASTIC CONTAINER [Suspect]
     Indication: DRUG USE FOR UNKNOWN INDICATION
     Route: 042
     Dates: start: 20081208, end: 20081208
  2. ETOPOSIDE [Suspect]
     Indication: ACUTE LYMPHOCYTIC LEUKAEMIA
     Route: 042
     Dates: start: 20081208, end: 20081208
  3. VINCRISTINE SULFATE [Suspect]
     Indication: ACUTE LYMPHOCYTIC LEUKAEMIA
     Route: 040
     Dates: start: 20081208, end: 20081208
  4. CYTARABINE [Suspect]
     Indication: ACUTE LYMPHOCYTIC LEUKAEMIA
     Route: 040
     Dates: start: 20081208, end: 20081208
  5. METHOTREXATE [Suspect]
     Indication: PROPHYLAXIS
     Route: 037
     Dates: start: 20081208, end: 20081208
  6. DEXAMETHASONE [Concomitant]
     Indication: ACUTE LYMPHOCYTIC LEUKAEMIA
     Route: 048

REACTIONS (2)
  - CATHETER RELATED INFECTION [None]
  - HYPERSENSITIVITY [None]
